FAERS Safety Report 6627101-1 (Version None)
Quarter: 2010Q1

REPORT INFORMATION
  Report Type: 
  Country: None (occurrence: None)
  Receive Date: 20100311
  Receipt Date: 20090820
  Transmission Date: 20100710
  Serious: No
  Sender: FDA-Public Use
  Company Number: A0803186A

PATIENT
  Age: 37 Year
  Sex: Female

DRUGS (1)
  1. NICORETTE [Suspect]
     Dates: start: 20090819, end: 20090819

REACTIONS (4)
  - DIZZINESS [None]
  - DYSSTASIA [None]
  - MUSCULAR WEAKNESS [None]
  - NAUSEA [None]
